FAERS Safety Report 8015553-4 (Version None)
Quarter: 2011Q4

REPORT INFORMATION
  Report Type: 
  Country: None (occurrence: None)
  Receive Date: 20111230
  Receipt Date: 20111219
  Transmission Date: 20120403
  Serious: Yes (Other)
  Sender: FDA-Public Use
  Company Number: NL-RANBAXY-2011RR-50246

PATIENT
  Age: 69 Year
  Sex: Female

DRUGS (8)
  1. PACLITAXEL [Concomitant]
     Indication: ENDOMETRIAL CANCER
  2. GABAPENTIN [Suspect]
     Indication: POLYNEUROPATHY
  3. GABAPENTIN [Suspect]
     Dosage: 3600 MG/DAY
     Route: 065
  4. CARBOPLATIN [Concomitant]
     Indication: CHEMOTHERAPY
     Route: 065
  5. CARBOPLATIN [Concomitant]
     Indication: ENDOMETRIAL CANCER
  6. PACLITAXEL [Concomitant]
     Indication: CHEMOTHERAPY
     Route: 065
  7. GABAPENTIN [Suspect]
     Indication: NEURALGIA
     Dosage: 300 MG/DAY
     Route: 065
  8. GABAPENTIN [Suspect]

REACTIONS (2)
  - GAIT DISTURBANCE [None]
  - FALL [None]
